FAERS Safety Report 10502940 (Version 3)
Quarter: 2014Q4

REPORT INFORMATION
  Report Type: Spontaneous
  Country: US (occurrence: US)
  Receive Date: 20141007
  Receipt Date: 20141015
  Transmission Date: 20150528
  Serious: No
  Sender: FDA-Public Use
  Company Number: US-TAKEDA-2014TUS008520

PATIENT
  Age: 20 Year
  Sex: Female
  Weight: 92.97 kg

DRUGS (17)
  1. ONDANSETRON HCL [Concomitant]
     Active Substance: ONDANSETRON HYDROCHLORIDE
     Indication: NAUSEA
     Dosage: 4 MG, 1 TAB EVERY 8 HRS, PRN
     Route: 048
     Dates: start: 20131231
  2. ONDANSETRON HCL [Concomitant]
     Active Substance: ONDANSETRON HYDROCHLORIDE
     Dosage: 4 MG, 1 TAB EVERY 8 HRS, PRN
     Route: 048
     Dates: start: 20140829
  3. MINERALS NOS W/VITAMINS NOS [Concomitant]
     Dosage: 1 DF, QD
  4. ENTYVIO [Suspect]
     Active Substance: VEDOLIZUMAB
     Dosage: 300 MG, THIRD DOSE
     Route: 042
     Dates: start: 20140825, end: 20140825
  5. UNKNOWN MEDICATIONS [Concomitant]
     Active Substance: UNSPECIFIED INGREDIENT
     Dosage: UNK
  6. ENTYVIO [Suspect]
     Active Substance: VEDOLIZUMAB
     Indication: COLITIS ULCERATIVE
     Dosage: 300 MG, FIRST DOSE
     Route: 042
     Dates: start: 20140714, end: 20140714
  7. LIALDA [Concomitant]
     Active Substance: MESALAMINE
     Dosage: 1.2 G, 4 TABLETS WITH MORNING MEAL
     Route: 048
     Dates: start: 20140626
  8. NEXIUM [Concomitant]
     Active Substance: ESOMEPRAZOLE MAGNESIUM
     Dosage: 40 MG, BID, DAILY 30 MIN PRIOR TO BREAKFAST AND DINNER
     Route: 048
     Dates: start: 20131231
  9. SPIRONOLACTONE. [Concomitant]
     Active Substance: SPIRONOLACTONE
     Dosage: 100 MG, BID
     Route: 048
     Dates: start: 20131231
  10. CALCIUM [Concomitant]
     Active Substance: CALCIUM
     Dosage: 200 MG, BID
     Dates: start: 20131231
  11. METFORMIN HCL [Concomitant]
     Active Substance: METFORMIN HYDROCHLORIDE
     Indication: POLYCYSTIC OVARIES
     Dosage: 1000 MG, BID WITH MEALS
     Route: 048
     Dates: start: 20131231
  12. ENTYVIO [Suspect]
     Active Substance: VEDOLIZUMAB
     Dosage: 300 MG, SECOND DOSE
     Route: 042
     Dates: start: 20140728, end: 20140728
  13. FEXOFENADINE HCL [Suspect]
     Active Substance: FEXOFENADINE HYDROCHLORIDE
     Indication: PRODUCT USED FOR UNKNOWN INDICATION
     Dosage: 150 MG, QD
     Dates: start: 20131231
  14. BENADRYL [Suspect]
     Active Substance: DIPHENHYDRAMINE HYDROCHLORIDE
     Indication: PRODUCT USED FOR UNKNOWN INDICATION
     Dosage: UNK
     Route: 048
  15. ALIGN [Concomitant]
     Active Substance: BIFIDOBACTERIUM LONGUM SUBSP. INFANTIS
     Dosage: 4 MG, QD
     Route: 048
     Dates: start: 20131231
  16. FERROUS SULFATE [Concomitant]
     Active Substance: FERROUS SULFATE\FERROUS SULFATE, DRIED
     Dosage: 325 (65 FE) MG , 2 TABS AT BEDTIME
     Route: 048
     Dates: start: 20131231
  17. ORTHO TRI CYCLEN [Concomitant]
     Active Substance: ETHINYL ESTRADIOL\NORGESTIMATE
     Dosage: UNK
     Dates: start: 20131231

REACTIONS (3)
  - JC virus test positive [Unknown]
  - Headache [Recovered/Resolved]
  - Tic [Recovered/Resolved]

NARRATIVE: CASE EVENT DATE: 20140903
